FAERS Safety Report 7450563-7 (Version None)
Quarter: 2011Q2

REPORT INFORMATION
  Report Type: 
  Country: None (occurrence: None)
  Receive Date: 20110502
  Receipt Date: 20110420
  Transmission Date: 20111010
  Serious: Yes (Hospitalization)
  Sender: FDA-Public Use
  Company Number: US-JNJFOC-20110206224

PATIENT
  Sex: Male

DRUGS (1)
  1. ARESTIN [Suspect]
     Indication: BACTERIAL INFECTION
     Route: 065

REACTIONS (2)
  - INTERSTITIAL LUNG DISEASE [None]
  - ARTHRALGIA [None]
